FAERS Safety Report 7429796-1 (Version None)
Quarter: 2011Q2

REPORT INFORMATION
  Report Type: 
  Country: None (occurrence: None)
  Receive Date: 20110414
  Receipt Date: 20110404
  Transmission Date: 20111010
  Serious: Yes (Hospitalization)
  Sender: FDA-Public Use
  Company Number: UTC-006110

PATIENT
  Age: 45 Year
  Sex: Female
  Weight: 54.5 kg

DRUGS (3)
  1. DIURETICS (DIURETICS) [Concomitant]
  2. REVATIO [Concomitant]
  3. REMODULIN [Suspect]
     Indication: PULMONARY ARTERIAL HYPERTENSION
     Dosage: 51.84 UG/KG (0.036 UG/KG,1 IN 1 MIN),INHALATION
     Route: 055
     Dates: start: 20090801

REACTIONS (5)
  - ABDOMINAL PAIN [None]
  - NAUSEA [None]
  - PLATELET COUNT DECREASED [None]
  - ABDOMINAL DISTENSION [None]
  - VARICES OESOPHAGEAL [None]
